FAERS Safety Report 7399651-4 (Version None)
Quarter: 2011Q2

REPORT INFORMATION
  Report Type: 
  Country: None (occurrence: None)
  Receive Date: 20110407
  Receipt Date: 20100528
  Transmission Date: 20111010
  Serious: No
  Sender: FDA-Public Use
  Company Number: US-KINGPHARMUSA00001-K201000697

PATIENT
  Sex: Female
  Weight: 58.05 kg

DRUGS (8)
  1. LYRICA [Concomitant]
     Dosage: 50 MG, PRN
  2. SKELAXIN [Suspect]
     Indication: MUSCLE SPASMS
     Dosage: 800 MG, QID
     Route: 048
     Dates: start: 20100528
  3. DARVOCET [Concomitant]
     Dosage: 1 DF, QD
  4. SKELAXIN [Suspect]
     Indication: BACK PAIN
  5. SINEMET [Concomitant]
     Dosage: 25/100 FIVE TIMES DAILY
  6. ACETAMINOPHEN [Concomitant]
     Dosage: 1000 MG, 6 TIMES DAILY
  7. ZOLPIDEM TARTRATE [Concomitant]
     Dosage: 10 MG, QHS
  8. MIRAPEX [Concomitant]
     Dosage: 1.5 MG, TID
     Route: 048

REACTIONS (3)
  - ARTHRITIS [None]
  - MALAISE [None]
  - DRUG EFFECT DECREASED [None]
